FAERS Safety Report 4689882-6 (Version None)
Quarter: 2005Q2

REPORT INFORMATION
  Report Type: 
  Country: None (occurrence: None)
  Receive Date: 20050614
  Receipt Date: 20050607
  Transmission Date: 20051028
  Serious: Yes (Other)
  Sender: FDA-Public Use
  Company Number: US-GLAXOSMITHKLINE-A0561570A

PATIENT
  Age: 63 Year
  Sex: Female

DRUGS (2)
  1. TUMS E-X TABLETS, TROPICAL FRUIT [Suspect]
     Indication: STOMACH DISCOMFORT
     Route: 048
  2. COUMADIN [Concomitant]

REACTIONS (1)
  - PNEUMONIA [None]
